FAERS Safety Report 7683559-0 (Version None)
Quarter: 2011Q3

REPORT INFORMATION
  Report Type: 
  Country: None (occurrence: None)
  Receive Date: 20110815
  Receipt Date: 20110804
  Transmission Date: 20111222
  Serious: Yes (Death, Hospitalization)
  Sender: FDA-Public Use
  Company Number: CA-JNJFOC-20110703119

PATIENT
  Sex: Male
  Weight: 46 kg

DRUGS (10)
  1. PREVACID [Concomitant]
     Route: 065
     Dates: start: 20091020
  2. VITAMIN B-12 [Concomitant]
  3. METHOTREXATE [Concomitant]
     Route: 065
  4. AGGRENOX [Concomitant]
     Dosage: 200/25 MG
     Dates: start: 20090101
  5. TECTA [Concomitant]
  6. FOLIC ACID [Concomitant]
  7. SPIRIVA [Concomitant]
     Dates: start: 20110401
  8. REMICADE [Suspect]
     Indication: RHEUMATOID ARTHRITIS
     Route: 042
     Dates: start: 20000701
  9. FOSAMAX [Concomitant]
  10. PREDNISONE [Concomitant]
     Route: 065
     Dates: start: 20110401, end: 20110505

REACTIONS (3)
  - LUNG DISORDER [None]
  - DEATH [None]
  - PNEUMONIA [None]
